FAERS Safety Report 9613533 (Version 4)
Quarter: 2013Q4

REPORT INFORMATION
  Report Type: Spontaneous
  Country: JP (occurrence: JP)
  Receive Date: 20131010
  Receipt Date: 20131107
  Transmission Date: 20140711
  Serious: Yes (Hospitalization, Other)
  Sender: FDA-Public Use
  Company Number: JP-ASTRAZENECA-2013SE64087

PATIENT
  Age: 5102 Day
  Sex: Male
  Weight: 59 kg

DRUGS (13)
  1. OMEPRAL [Suspect]
     Indication: GASTRITIS
     Route: 041
     Dates: start: 20130809, end: 20130813
  2. METHOTREXATE [Interacting]
     Indication: ACUTE LYMPHOCYTIC LEUKAEMIA
     Route: 041
     Dates: start: 20130805, end: 20130806
  3. ENDOXAN [Concomitant]
     Indication: ACUTE LYMPHOCYTIC LEUKAEMIA
     Dosage: DOSE UNKNOWN
     Route: 065
     Dates: start: 20130806, end: 20130808
  4. LEUNASE [Concomitant]
     Indication: ACUTE LYMPHOCYTIC LEUKAEMIA
     Dosage: 41000 IU DAILY
     Route: 041
     Dates: start: 20130812, end: 20130812
  5. CYLOCIDE [Concomitant]
     Indication: ACUTE LYMPHOCYTIC LEUKAEMIA
     Route: 041
     Dates: start: 20130809, end: 20130809
  6. PRIMPERAN [Concomitant]
     Indication: VOMITING
     Route: 041
     Dates: start: 20130806, end: 20130814
  7. DEXART [Concomitant]
     Indication: ACUTE LYMPHOCYTIC LEUKAEMIA
     Route: 041
     Dates: start: 20130805, end: 20130809
  8. DIAMOX [Concomitant]
     Indication: OEDEMA
     Route: 042
     Dates: start: 20130805, end: 20130810
  9. GRANISETRON [Concomitant]
     Indication: VOMITING
     Route: 042
     Dates: start: 20130805, end: 20130813
  10. LEUCOVORIN [Concomitant]
     Route: 042
     Dates: start: 20130807, end: 20130807
  11. LEUCOVORIN [Concomitant]
     Route: 042
     Dates: start: 20130808, end: 20130818
  12. LASIX [Concomitant]
     Indication: OEDEMA
     Route: 042
     Dates: start: 20130807, end: 20130819
  13. ATARAX-P [Concomitant]
     Indication: ANXIETY DISORDER
     Route: 041
     Dates: start: 20130810, end: 20130812

REACTIONS (2)
  - Drug interaction [Recovered/Resolved]
  - Chemotherapeutic drug level increased [Recovered/Resolved]
